FAERS Safety Report 5830974-3 (Version None)
Quarter: 2008Q3

REPORT INFORMATION
  Report Type: 
  Country: None (occurrence: None)
  Receive Date: 20080801
  Receipt Date: 20080506
  Transmission Date: 20090109
  Serious: Yes (Death)
  Sender: FDA-Public Use
  Company Number: US-BRISTOL-MYERS SQUIBB COMPANY-14104822

PATIENT
  Sex: Female

DRUGS (2)
  1. COUMADIN [Suspect]
  2. ENOXAPARIN SODIUM [Suspect]
     Dosage: SOLUTION FOR INJECTION
     Dates: start: 20080201, end: 20080201

REACTIONS (5)
  - HALLUCINATION [None]
  - INSOMNIA [None]
  - MENTAL DISORDER [None]
  - RETROPERITONEAL HAEMORRHAGE [None]
  - SPEECH DISORDER [None]
